FAERS Safety Report 9247625 (Version 1)
Quarter: 2013Q2

REPORT INFORMATION
  Report Type: Spontaneous
  Country: TN (occurrence: TN)
  Receive Date: 20130423
  Receipt Date: 20130423
  Transmission Date: 20140414
  Serious: Yes (Other)
  Sender: FDA-Public Use
  Company Number: TN-AMGEN-TUNSP2013027776

PATIENT
  Age: 60 Year
  Sex: Male

DRUGS (1)
  1. ENBREL [Suspect]
     Indication: RHEUMATOID ARTHRITIS
     Dosage: 50 MG, WEEKLY
     Dates: start: 201204

REACTIONS (9)
  - Polyneuropathy [Unknown]
  - Paresis [Unknown]
  - Ataxia [Unknown]
  - Dizziness [Unknown]
  - Fall [Unknown]
  - Micturition urgency [Unknown]
  - Sensory disturbance [Unknown]
  - Motion sickness [Unknown]
  - Paraesthesia [Unknown]
